FAERS Safety Report 19789816 (Version 1)
Quarter: 2021Q3

REPORT INFORMATION
  Report Type: Report from Study
  Country: BR (occurrence: BR)
  Receive Date: 20210904
  Receipt Date: 20210904
  Transmission Date: 20211014
  Serious: Yes (Other)
  Sender: FDA-Public Use
  Company Number: NVSC2021BR197996

PATIENT
  Sex: Female

DRUGS (3)
  1. ENTRESTO [Suspect]
     Active Substance: SACUBITRIL\VALSARTAN
     Dosage: 49.51 MG, UNK, (2 TABLETS PER DAY)
     Route: 048
  2. CONCARDIO [Concomitant]
     Active Substance: BISOPROLOL FUMARATE
     Indication: PRODUCT USED FOR UNKNOWN INDICATION
     Route: 065
  3. ENTRESTO [Suspect]
     Active Substance: SACUBITRIL\VALSARTAN
     Indication: PRODUCT USED FOR UNKNOWN INDICATION
     Dosage: LOWER DOSAGE
     Route: 048

REACTIONS (8)
  - Rhinitis allergic [Unknown]
  - Swollen tongue [Unknown]
  - Renal disorder [Unknown]
  - Toxicity to various agents [Unknown]
  - Lip swelling [Unknown]
  - Memory impairment [Unknown]
  - Bladder disorder [Unknown]
  - Hypersensitivity [Unknown]
